FAERS Safety Report 13696569 (Version 1)
Quarter: 2017Q2

REPORT INFORMATION
  Report Type: Spontaneous
  Country: DE (occurrence: DE)
  Receive Date: 20170628
  Receipt Date: 20170628
  Transmission Date: 20170830
  Serious: Yes (Hospitalization)
  Sender: FDA-Public Use
  Company Number: PHHY2017DE078322

PATIENT
  Sex: Male
  Weight: 101 kg

DRUGS (7)
  1. NOVORAPID [Concomitant]
     Active Substance: INSULIN ASPART
     Dosage: 2 IU, TID (DAILY, 0-6 AT MAXIMUN 6 IU (2 IU THICE DAILY))
     Route: 058
     Dates: start: 20170519
  2. NOVORAPID [Concomitant]
     Active Substance: INSULIN ASPART
     Indication: TYPE 1 DIABETES MELLITUS
     Dosage: UNK UNK, QD (PRN)
     Route: 058
     Dates: start: 2000
  3. CITALOPRAM [Concomitant]
     Active Substance: CITALOPRAM HYDROBROMIDE
     Indication: DEPRESSION
     Dosage: 10 MG, QD
     Route: 048
     Dates: start: 2011
  4. GILENYA [Suspect]
     Active Substance: FINGOLIMOD HYDROCHLORIDE
     Indication: MULTIPLE SCLEROSIS
     Dosage: 0.5 MG, QD
     Route: 048
     Dates: start: 2014
  5. LEVEMIR [Concomitant]
     Active Substance: INSULIN DETEMIR
     Indication: TYPE 1 DIABETES MELLITUS
     Dosage: 15 IU, QD
     Route: 065
     Dates: start: 2017
  6. RAMIPRIL. [Concomitant]
     Active Substance: RAMIPRIL
     Indication: HYPERTENSION
     Dosage: 5 MG, QD
     Route: 048
     Dates: start: 2009
  7. LEVEMIR [Concomitant]
     Active Substance: INSULIN DETEMIR
     Dosage: 3 IU, QD
     Route: 065
     Dates: start: 20170519

REACTIONS (12)
  - Vision blurred [Unknown]
  - Fatigue [Unknown]
  - Asthenia [Unknown]
  - Hypoglycaemic coma [Unknown]
  - Confusional state [Unknown]
  - Hypoglycaemia [Recovered/Resolved]
  - Hunger [Unknown]
  - Motor dysfunction [Unknown]
  - Loss of consciousness [Unknown]
  - Hyperhidrosis [Unknown]
  - Mental impairment [Unknown]
  - Somnolence [Unknown]
